FAERS Safety Report 15676411 (Version 1)
Quarter: 2018Q4

REPORT INFORMATION
  Report Type: Spontaneous
  Country: RU (occurrence: RU)
  Receive Date: 20181130
  Receipt Date: 20181130
  Transmission Date: 20190205
  Serious: Yes (Other)
  Sender: FDA-Public Use
  Company Number: RU-SAKK-2018SA172713AA

PATIENT
  Age: 71 Year
  Sex: Female
  Weight: 90 kg

DRUGS (4)
  1. TOUJEO [Suspect]
     Active Substance: INSULIN GLARGINE
     Indication: TYPE 2 DIABETES MELLITUS
     Dosage: 50 IU, UNK
     Route: 058
  2. DIABETON [GLICLAZIDE] [Concomitant]
     Indication: TYPE 2 DIABETES MELLITUS
     Dosage: 60 MG, UNK
     Route: 048
  3. LANTUS [Concomitant]
     Active Substance: INSULIN GLARGINE
     Indication: TYPE 2 DIABETES MELLITUS
     Dosage: 50 IU, UNK
     Route: 058
  4. METFORMIN [Concomitant]
     Active Substance: METFORMIN HYDROCHLORIDE
     Indication: TYPE 2 DIABETES MELLITUS
     Dosage: 1000 MG, BID
     Route: 048

REACTIONS (3)
  - Inflammation [Recovered/Resolved]
  - Hyperglycaemia [Recovered/Resolved]
  - Diabetic foot infection [Recovered/Resolved]
